FAERS Safety Report 6535326-9 (Version None)
Quarter: 2010Q1

REPORT INFORMATION
  Report Type: 
  Country: None (occurrence: None)
  Receive Date: 20100113
  Receipt Date: 20100108
  Transmission Date: 20100710
  Serious: Yes (Hospitalization)
  Sender: FDA-Public Use
  Company Number: US-ROCHE-678612

PATIENT
  Age: 23 Year
  Sex: Male
  Weight: 51 kg

DRUGS (2)
  1. CELLCEPT [Suspect]
     Route: 048
  2. TACROLIMUS [Concomitant]

REACTIONS (1)
  - CYSTIC FIBROSIS [None]
